FAERS Safety Report 18620857 (Version 1)
Quarter: 2020Q4

REPORT INFORMATION
  Report Type: Report from Study
  Country: DE (occurrence: DE)
  Receive Date: 20201215
  Receipt Date: 20201215
  Transmission Date: 20210114
  Serious: Yes (Other)
  Sender: FDA-Public Use
  Company Number: DE-TAKEDA-DE201736700

PATIENT

DRUGS (3)
  1. HUMAN IMMUNOGLOBULIN; HYALURONIDASE [Suspect]
     Active Substance: HUMAN IMMUNOGLOBULIN G\HYALURONIDASE RECOMBINANT HUMAN
     Indication: IMMUNODEFICIENCY COMMON VARIABLE
     Dosage: 300 ML/ H, EVERY 4 WK
     Route: 058
     Dates: start: 20160918, end: 20161012
  2. HUMAN IMMUNOGLOBULIN; HYALURONIDASE [Suspect]
     Active Substance: HUMAN IMMUNOGLOBULIN G\HYALURONIDASE RECOMBINANT HUMAN
     Dosage: 100 ML/H, EVERY 4 WK
     Route: 058
     Dates: start: 20161108, end: 20170105
  3. AERIUS [Concomitant]
     Indication: URTICARIA
     Dosage: 5 MILLIGRAM, QD
     Route: 048
     Dates: start: 20160101, end: 20160109

REACTIONS (1)
  - Sinusitis [Recovered/Resolved]

NARRATIVE: CASE EVENT DATE: 201609
